FAERS Safety Report 4600099-3 (Version None)
Quarter: 2005Q1

REPORT INFORMATION
  Report Type: 
  Country: None (occurrence: None)
  Receive Date: 20050303
  Receipt Date: 20050216
  Transmission Date: 20050727
  Serious: Yes (Hospitalization)
  Sender: FDA-Public Use
  Company Number: WAES 0502DEU00131

PATIENT

DRUGS (1)
  1. HYZAAR [Suspect]
     Indication: HYPERTENSION
     Dosage: PO
     Route: 048
     Dates: start: 20040101

REACTIONS (2)
  - ATRIAL FIBRILLATION [None]
  - PERIPHERAL OCCLUSIVE DISEASE [None]
